FAERS Safety Report 7183589-1 (Version None)
Quarter: 2010Q4

REPORT INFORMATION
  Report Type: 
  Country: None (occurrence: None)
  Receive Date: 20101222
  Receipt Date: 20101215
  Transmission Date: 20110411
  Serious: Yes (Other)
  Sender: FDA-Public Use
  Company Number: CL-PFIZER INC-2010173823

PATIENT
  Sex: Female

DRUGS (1)
  1. MEDROL [Suspect]
     Indication: OSTEOARTHRITIS
     Dosage: UNK

REACTIONS (3)
  - ORAL INFECTION [None]
  - STOMATITIS [None]
  - URINARY TRACT INFECTION [None]
